FAERS Safety Report 18001222 (Version 4)
Quarter: 2022Q2

REPORT INFORMATION
  Report Type: Report from Study
  Country: AU (occurrence: AU)
  Receive Date: 20200709
  Receipt Date: 20220419
  Transmission Date: 20220720
  Serious: Yes (Other)
  Sender: FDA-Public Use
  Company Number: AU-PFIZER INC-2020258292

PATIENT
  Sex: Male
  Weight: 16.2 kg

DRUGS (27)
  1. GEMTUZUMAB OZOGAMICIN [Suspect]
     Active Substance: GEMTUZUMAB OZOGAMICIN
     Indication: Acute myeloid leukaemia
     Dosage: 2 MG (OTHER)
     Route: 042
     Dates: start: 20200605, end: 20200611
  2. MITOXANTRONE HYDROCHLORIDE [Suspect]
     Active Substance: MITOXANTRONE HYDROCHLORIDE
     Indication: Acute myeloid leukaemia
     Dosage: 12 MG/M2, 1X/DAY
     Route: 042
     Dates: start: 20200602, end: 20200605
  3. ONDANSETRON [Concomitant]
     Active Substance: ONDANSETRON
     Indication: Nausea
     Dosage: 2 MG, 4X/DAY
     Dates: start: 20200602
  4. AMBISOME [Concomitant]
     Active Substance: AMPHOTERICIN B
     Indication: Antifungal prophylaxis
     Dosage: 50 MG (3 TIMES A WEEK)
     Dates: start: 20200615, end: 20200626
  5. CHLORHEXIDINE [CHLORHEXIDINE DIACETATE] [Concomitant]
     Indication: Prophylaxis
     Dosage: 5 ML, 2X/DAY
     Dates: start: 20200604
  6. METOCLOPRAMIDE [Concomitant]
     Active Substance: METOCLOPRAMIDE
     Indication: Nausea
     Dosage: 2 MG, 3X/DAY
     Dates: start: 20200606
  7. ACETAMINOPHEN [Concomitant]
     Active Substance: ACETAMINOPHEN
     Indication: Pain
     Dosage: 240 MG, 4X/DAY
     Dates: start: 20200607
  8. ACETAMINOPHEN [Concomitant]
     Active Substance: ACETAMINOPHEN
     Dosage: 80 MG, 4X/DAY
     Dates: start: 20200607
  9. POLOXAMER 188 [Concomitant]
     Active Substance: POLOXAMER 188
     Indication: Laxative supportive care
     Dosage: UNK, AS NEEDED (0.8 PUFFS)
     Dates: start: 20200611, end: 20200624
  10. POLOXAMER 188 [Concomitant]
     Active Substance: POLOXAMER 188
     Dosage: 0.8 ML, 2X/DAY
     Dates: start: 20200611, end: 20200624
  11. PIPERACILLIN SODIUM\TAZOBACTAM SODIUM [Concomitant]
     Active Substance: PIPERACILLIN SODIUM\TAZOBACTAM SODIUM
     Indication: Febrile neutropenia
     Dosage: 1.6 G, 4X/DAY
     Dates: start: 20200611
  12. BACTRIM [Concomitant]
     Active Substance: SULFAMETHOXAZOLE\TRIMETHOPRIM
     Indication: Prophylaxis
     Dosage: 40 MG (TWICE DAILY ON SATURDAY+ SUNDAY ONLY)
     Dates: start: 20200613
  13. VANCOMYCIN [Concomitant]
     Active Substance: VANCOMYCIN
     Indication: Febrile neutropenia
     Dosage: 300 MG, 2X/DAY
     Dates: start: 20200613
  14. AMOXICILLIN\CLAVULANIC ACID [Concomitant]
     Active Substance: AMOXICILLIN\CLAVULANIC ACID
     Indication: Antibiotic therapy
     Dosage: 360 MG, 2X/DAY
     Dates: start: 20200618, end: 20200620
  15. CIPROFLOXACIN [Concomitant]
     Active Substance: CIPROFLOXACIN
     Indication: Antibiotic therapy
     Dosage: 200 MG, 3X/DAY
     Dates: start: 20200618, end: 20200620
  16. CHLORVESCENT [POTASSIUM CHLORIDE] [Concomitant]
     Indication: Hypokalaemia
     Dosage: 1 DF (1 TABLET (S.O.S))
     Dates: start: 20200624, end: 20200624
  17. CHLORVESCENT [POTASSIUM CHLORIDE] [Concomitant]
     Dosage: 1 DF, 2X/DAY
     Dates: start: 20200623, end: 20200625
  18. TRAMADOL [Concomitant]
     Active Substance: TRAMADOL
     Indication: Pain
     Dosage: 16 MG, 4X/DAY
     Dates: start: 20200626
  19. VORICONAZOLE [Concomitant]
     Active Substance: VORICONAZOLE
     Indication: Antifungal prophylaxis
     Dosage: 130 MG, 2X/DAY
     Dates: start: 20200626
  20. ACYCLOVIR [Concomitant]
     Active Substance: ACYCLOVIR
     Indication: Herpes simplex
     Dosage: 320 MG, 4X/DAY
     Dates: start: 20200626, end: 20200629
  21. FENTANYL [Concomitant]
     Active Substance: FENTANYL
     Indication: Mucosal inflammation
     Dosage: UNK (INFUSION WITH VARIABLE RATES)
     Dates: start: 20200625
  22. FENTANYL [Concomitant]
     Active Substance: FENTANYL
     Dosage: 3.2 UG/ML  (INFUSION WITH VARIABLE RATES)
     Dates: start: 20200628
  23. CETIRIZINE [Concomitant]
     Active Substance: CETIRIZINE HYDROCHLORIDE
     Indication: Hypersensitivity
     Dosage: 2.5 MG, AS NEEDED
     Dates: start: 20200628
  24. NIFEDIPINE [Concomitant]
     Active Substance: NIFEDIPINE
     Indication: Hypertension
     Dosage: 4 MG, AS NEEDED
     Dates: start: 20200629
  25. FUROSEMIDE [Concomitant]
     Active Substance: FUROSEMIDE
     Indication: Diuretic therapy
     Dosage: 8 MG, AS NEEDED (S.O.S)
     Dates: start: 20200625, end: 20200625
  26. MIDAZOLAM [Concomitant]
     Active Substance: MIDAZOLAM
     Indication: Sedation
     Dosage: 3.2 MG, AS NEEDED (S.O.S)
     Dates: start: 20200627, end: 20200627
  27. OXYCODONE [Concomitant]
     Active Substance: OXYCODONE
     Indication: Pain
     Dosage: 2 MG, AS NEEDED
     Dates: start: 20200624, end: 20200627

REACTIONS (3)
  - Seizure [Recovered/Resolved]
  - Meningitis [Recovered/Resolved]
  - Sepsis [Recovered/Resolved]

NARRATIVE: CASE EVENT DATE: 20200630
